FAERS Safety Report 7320357 (Version 3)
Quarter: 2012Q4

REPORT INFORMATION
  Report Type: Report from Study
  Country: FR (occurrence: FR)
  Receive Date: 20100315
  Receipt Date: 20120928
  Transmission Date: 20130627
  Serious: Yes (Hospitalization)
  Sender: FDA-Public Use
  Company Number: FR-ABBOTT-10P-056-0630457-01

PATIENT
  Age: 48 Year
  Sex: Female
  Weight: 67 kg

DRUGS (5)
  1. HUMIRA [Suspect]
     Indication: CROHN^S DISEASE
     Route: 058
     Dates: start: 20080903
  2. HUMIRA [Suspect]
  3. VASTAREL [Concomitant]
     Indication: DEAFNESS UNILATERAL
     Dates: start: 200709
  4. VASTAREL [Concomitant]
     Indication: VERTIGO
  5. PROPRANOLOL [Concomitant]
     Indication: TACHYCARDIA
     Dates: start: 200801

REACTIONS (2)
  - Myalgia [Recovered/Resolved]
  - Muscular weakness [Recovered/Resolved]
